FAERS Safety Report 15594486 (Version 1)
Quarter: 2018Q4

REPORT INFORMATION
  Report Type: Spontaneous
  Country: JP (occurrence: JP)
  Receive Date: 20181106
  Receipt Date: 20181106
  Transmission Date: 20190205
  Serious: Yes (Death, Other)
  Sender: FDA-Public Use
  Company Number: JP-BAUSCH-BL-2018-030233

PATIENT
  Age: 65 Year
  Sex: Male

DRUGS (21)
  1. FLUOROURACIL. [Suspect]
     Active Substance: FLUOROURACIL
     Indication: SALIVARY GLAND CANCER
     Dosage: INITIATED IN MONTH 5
     Route: 065
  2. LEUPRORELIN ACETATE [Suspect]
     Active Substance: LEUPROLIDE ACETATE
     Indication: SALIVARY GLAND CANCER
     Route: 058
     Dates: start: 201304
  3. BICALUTAMIDE. [Suspect]
     Active Substance: BICALUTAMIDE
     Indication: SALIVARY GLAND CANCER
     Route: 048
     Dates: start: 201304
  4. FLUOROURACIL. [Suspect]
     Active Substance: FLUOROURACIL
     Indication: METASTASES TO LUNG
     Dosage: INITIATED IN MONTH 11
     Route: 065
  5. BICALUTAMIDE. [Suspect]
     Active Substance: BICALUTAMIDE
     Indication: METASTASES TO NECK
  6. CETUXIMAB. [Suspect]
     Active Substance: CETUXIMAB
     Indication: METASTASES TO NECK
  7. DOCETAXEL. [Concomitant]
     Active Substance: DOCETAXEL
     Indication: PRODUCT USED FOR UNKNOWN INDICATION
     Dosage: IN THE MONTH OF 5
  8. CETUXIMAB. [Suspect]
     Active Substance: CETUXIMAB
     Indication: SALIVARY GLAND CANCER
     Route: 065
  9. CETUXIMAB. [Suspect]
     Active Substance: CETUXIMAB
     Indication: METASTASES TO LUNG
  10. LEUPRORELIN ACETATE [Suspect]
     Active Substance: LEUPROLIDE ACETATE
     Indication: METASTASES TO LUNG
  11. LEUPRORELIN ACETATE [Suspect]
     Active Substance: LEUPROLIDE ACETATE
     Indication: METASTASES TO NECK
  12. CISPLATIN. [Suspect]
     Active Substance: CISPLATIN
     Indication: METASTASES TO NECK
     Dosage: INITIATED IN MONTH 18
     Route: 065
  13. PACLITAXEL. [Concomitant]
     Active Substance: PACLITAXEL
     Indication: PRODUCT USED FOR UNKNOWN INDICATION
  14. DOCETAXEL. [Concomitant]
     Active Substance: DOCETAXEL
     Dosage: IN THE MONTH OF 11
  15. FLUOROURACIL. [Suspect]
     Active Substance: FLUOROURACIL
     Indication: METASTASES TO NECK
     Dosage: INITIATED IN MONTH 18
     Route: 065
  16. BICALUTAMIDE. [Suspect]
     Active Substance: BICALUTAMIDE
     Indication: METASTASES TO LUNG
  17. FLUTAMIDE. [Suspect]
     Active Substance: FLUTAMIDE
     Indication: METASTASES TO LUNG
  18. FLUTAMIDE. [Suspect]
     Active Substance: FLUTAMIDE
     Indication: METASTASES TO NECK
  19. CISPLATIN. [Suspect]
     Active Substance: CISPLATIN
     Indication: SALIVARY GLAND CANCER
     Dosage: INITIATED IN MONTH 5
     Route: 065
  20. CISPLATIN. [Suspect]
     Active Substance: CISPLATIN
     Indication: METASTASES TO LUNG
     Dosage: INITIATED IN MONTH 11
     Route: 065
  21. FLUTAMIDE. [Suspect]
     Active Substance: FLUTAMIDE
     Indication: SALIVARY GLAND CANCER
     Route: 065

REACTIONS (2)
  - Metastatic salivary gland cancer [Fatal]
  - Febrile neutropenia [Unknown]
